FAERS Safety Report 21191446 (Version 1)
Quarter: 2022Q3

REPORT INFORMATION
  Report Type: Spontaneous
  Country: US (occurrence: US)
  Receive Date: 20220809
  Receipt Date: 20220809
  Transmission Date: 20221027
  Serious: No
  Sender: FDA-Public Use
  Company Number: US-JOURNEY MEDICAL CORPORATION-2021JNY00015

PATIENT
  Sex: Male

DRUGS (1)
  1. QBREXZA [Suspect]
     Active Substance: GLYCOPYRRONIUM TOSYLATE
     Dosage: 1 DOSAGE UNITS (1/2 OF EACH PAD AT EACH UNDERARM), 1X/DAY
     Route: 061
     Dates: start: 2020

REACTIONS (1)
  - Drug ineffective [Unknown]
